FAERS Safety Report 6172708-1 (Version None)
Quarter: 2009Q2

REPORT INFORMATION
  Report Type: 
  Country: None (occurrence: None)
  Receive Date: 20090430
  Receipt Date: 20090421
  Transmission Date: 20091009
  Serious: Yes (Hospitalization, Other)
  Sender: FDA-Public Use
  Company Number: US-BIOGENIDEC-2009BI004498

PATIENT
  Age: 52 Year
  Sex: Male
  Weight: 113 kg

DRUGS (3)
  1. AVONEX [Suspect]
     Indication: MULTIPLE SCLEROSIS
     Route: 030
     Dates: start: 20000821, end: 20030101
  2. AVONEX [Suspect]
     Route: 030
     Dates: start: 20030101, end: 20061110
  3. LOVASTATIN [Concomitant]
     Indication: BLOOD CHOLESTEROL INCREASED

REACTIONS (8)
  - CARDIAC FAILURE CONGESTIVE [None]
  - CYSTITIS [None]
  - DYSURIA [None]
  - FEELING ABNORMAL [None]
  - HYPERSENSITIVITY [None]
  - JOINT SWELLING [None]
  - PERICARDIAL EFFUSION [None]
  - URINARY INCONTINENCE [None]
